FAERS Safety Report 9085822 (Version 1)
Quarter: 2013Q1

REPORT INFORMATION
  Report Type: Report from Study
  Country: US (occurrence: US)
  Receive Date: 20130131
  Receipt Date: 20130131
  Transmission Date: 20140127
  Serious: Yes (Other)
  Sender: FDA-Public Use
  Company Number: US-ABBOTT-12P-163-0990812-00

PATIENT
  Sex: Male

DRUGS (2)
  1. HUMIRA PRE-FILLED SYRINGE [Suspect]
     Indication: PSORIATIC ARTHROPATHY
  2. HUMIRA PEN [Suspect]
     Indication: PSORIATIC ARTHROPATHY
     Dates: end: 201207

REACTIONS (2)
  - Renal cancer [Unknown]
  - Squamous cell carcinoma [Unknown]
